FAERS Safety Report 14354383 (Version 4)
Quarter: 2018Q3

REPORT INFORMATION
  Report Type: Spontaneous
  Country: US (occurrence: US)
  Receive Date: 20180105
  Receipt Date: 20180710
  Transmission Date: 20181010
  Serious: No
  Sender: FDA-Public Use
  Company Number: PHEH2018US000674

PATIENT
  Sex: Female
  Weight: 72.57 kg

DRUGS (2)
  1. ZOFRAN [Suspect]
     Active Substance: ONDANSETRON HYDROCHLORIDE
     Indication: VOMITING IN PREGNANCY
     Dosage: UNK
     Route: 042
     Dates: start: 199807, end: 199901
  2. ZOFRAN [Suspect]
     Active Substance: ONDANSETRON HYDROCHLORIDE
     Indication: VOMITING IN PREGNANCY
     Dosage: UNK
     Route: 048
     Dates: start: 199807, end: 199901

REACTIONS (8)
  - Product use in unapproved indication [Unknown]
  - Anhedonia [Unknown]
  - Emotional distress [Unknown]
  - Pain [Unknown]
  - Injury [Unknown]
  - Dehydration [Unknown]
  - Anxiety [Unknown]
  - Maternal exposure during pregnancy [Unknown]
